FAERS Safety Report 6311999-0 (Version None)
Quarter: 2009Q3

REPORT INFORMATION
  Report Type: 
  Country: None (occurrence: None)
  Receive Date: 20090817
  Receipt Date: 20090320
  Transmission Date: 20100115
  Serious: Yes (Other)
  Sender: FDA-Public Use
  Company Number: US-BRISTOL-MYERS SQUIBB COMPANY-14526925

PATIENT
  Age: 75 Year
  Sex: Female

DRUGS (7)
  1. ESTRACE [Suspect]
     Indication: HORMONE REPLACEMENT THERAPY
  2. PREMARIN [Suspect]
     Indication: HORMONE REPLACEMENT THERAPY
  3. ESTROGEN [Suspect]
  4. CYCRIN [Suspect]
  5. AYGESTIN [Suspect]
  6. PREMPRO [Suspect]
  7. CENESTIN [Suspect]

REACTIONS (1)
  - BREAST CANCER [None]
